FAERS Safety Report 5606372-4 (Version None)
Quarter: 2008Q1

REPORT INFORMATION
  Report Type: 
  Country: None (occurrence: None)
  Receive Date: 20080129
  Receipt Date: 20070803
  Transmission Date: 20080703
  Serious: No
  Sender: FDA-Public Use
  Company Number: A0668119A

PATIENT
  Age: 45 Year
  Sex: Female

DRUGS (4)
  1. WELLBUTRIN [Suspect]
     Indication: SEASONAL AFFECTIVE DISORDER
     Dosage: 150MG THREE TIMES PER DAY
     Route: 048
     Dates: start: 20030101
  2. WELLBUTRIN SR [Suspect]
     Indication: SEASONAL AFFECTIVE DISORDER
     Dosage: 150MG PER DAY
     Route: 048
  3. WELLBUTRIN XL [Suspect]
     Indication: SEASONAL AFFECTIVE DISORDER
     Dosage: 150MG TWICE PER DAY
     Route: 048
     Dates: start: 20070801, end: 20070802
  4. CLONAZEPAM [Concomitant]

REACTIONS (1)
  - INSOMNIA [None]
